FAERS Safety Report 7051132-3 (Version None)
Quarter: 2010Q4

REPORT INFORMATION
  Report Type: 
  Country: None (occurrence: None)
  Receive Date: 20101014
  Receipt Date: 20101004
  Transmission Date: 20110411
  Serious: Yes (Hospitalization)
  Sender: FDA-Public Use
  Company Number: 2010SP1001813

PATIENT
  Age: 24 Year
  Sex: Female

DRUGS (3)
  1. SOLODYN [Suspect]
     Indication: ACNE
     Dosage: 65 MG; QD; PO
     Route: 048
     Dates: start: 20100820, end: 20100901
  2. NUVARING (ETONOGESTREL/ UNKNOWN - UNKNOWN ETHINYL ESTRADIOL) [Concomitant]
  3. VAGINAL RING [Concomitant]

REACTIONS (3)
  - DRUG HYPERSENSITIVITY [None]
  - EYE SWELLING [None]
  - URTICARIA [None]
